FAERS Safety Report 9599070 (Version 2)
Quarter: 2013Q4

REPORT INFORMATION
  Report Type: Spontaneous
  Country: US (occurrence: US)
  Receive Date: 20131004
  Receipt Date: 20131004
  Transmission Date: 20140711
  Serious: No
  Sender: FDA-Public Use
  Company Number: US-AMGEN-USASP2013021562

PATIENT
  Age: 46 Year
  Sex: Female
  Weight: 64.4 kg

DRUGS (3)
  1. ENBREL [Suspect]
     Indication: RHEUMATOID ARTHRITIS
     Dosage: 50 MG, QWK
     Route: 058
     Dates: start: 20121220
  2. PREDNISONE [Suspect]
     Dosage: UNK
  3. METHOTREXATE [Concomitant]
     Dosage: 17.5 MG, QWK

REACTIONS (1)
  - Feeling hot [Not Recovered/Not Resolved]
